FAERS Safety Report 25776559 (Version 1)
Quarter: 2025Q3

REPORT INFORMATION
  Report Type: Spontaneous
  Country: US (occurrence: US)
  Receive Date: 20250909
  Receipt Date: 20250909
  Transmission Date: 20251020
  Serious: No
  Sender: TAKEDA
  Company Number: US-TAKEDA-2025TUS078376

PATIENT
  Sex: Male

DRUGS (1)
  1. ULORIC [Suspect]
     Active Substance: FEBUXOSTAT
     Indication: Nephrolithiasis

REACTIONS (2)
  - No adverse event [Unknown]
  - Product use in unapproved indication [Unknown]
